FAERS Safety Report 10228978 (Version 1)
Quarter: 2014Q2

REPORT INFORMATION
  Report Type: Report from Study
  Country: IN (occurrence: IN)
  Receive Date: 20140610
  Receipt Date: 20140610
  Transmission Date: 20141212
  Serious: Yes (Other)
  Sender: FDA-Public Use
  Company Number: IN-GLAXOSMITHKLINE-B1001430A

PATIENT
  Age: 58 Year
  Sex: 0

DRUGS (1)
  1. VOTRIENT [Suspect]
     Indication: RENAL CELL CARCINOMA
     Route: 065

REACTIONS (6)
  - Hypertensive crisis [Unknown]
  - Hypertension [Unknown]
  - Fatigue [Unknown]
  - Asthenia [Unknown]
  - Headache [Unknown]
  - Hepatotoxicity [Unknown]
